FAERS Safety Report 4906849-0 (Version None)
Quarter: 2006Q1

REPORT INFORMATION
  Report Type: 
  Country: None (occurrence: None)
  Receive Date: 20060207
  Receipt Date: 20060131
  Transmission Date: 20060701
  Serious: Yes (Other)
  Sender: FDA-Public Use
  Company Number: CHWYE351231JAN06

PATIENT
  Age: 44 Year
  Sex: Female

DRUGS (3)
  1. EFFEXOR [Suspect]
     Dates: start: 20051201
  2. INTERFERON ALFA-2A (INTERFERON ALFA) [Suspect]
  3. RIBAVIRIN [Suspect]

REACTIONS (3)
  - HAEMATOMA [None]
  - MENORRHAGIA [None]
  - METRORRHAGIA [None]
